FAERS Safety Report 9001521 (Version 1)
Quarter: 2013Q1

REPORT INFORMATION
  Report Type: Spontaneous
  Country: IT (occurrence: IT)
  Receive Date: 20130107
  Receipt Date: 20130107
  Transmission Date: 20140127
  Serious: Yes (Hospitalization)
  Sender: FDA-Public Use
  Company Number: IT-BAYER-2013-001607

PATIENT
  Age: 78 Year
  Sex: Male

DRUGS (2)
  1. ACETYLSALICYLIC ACID({=100 MG) [Suspect]
  2. ACETYLSALICYLIC ACID({=100 MG) [Suspect]

REACTIONS (6)
  - Acquired haemophilia [Recovered/Resolved]
  - Haematoma [None]
  - Fall [None]
  - Back injury [None]
  - Anaemia [None]
  - Retroperitoneal haematoma [None]
